FAERS Safety Report 15293770 (Version 1)
Quarter: 2018Q3

REPORT INFORMATION
  Report Type: Spontaneous
  Country: US (occurrence: US)
  Receive Date: 20180820
  Receipt Date: 20180820
  Transmission Date: 20181010
  Serious: Yes (Other)
  Sender: FDA-Public Use
  Company Number: US-STRIDES ARCOLAB LIMITED-2018SP003785

PATIENT

DRUGS (4)
  1. COLECALCIFEROL [Suspect]
     Active Substance: CHOLECALCIFEROL
     Indication: VITAMIN D DEFICIENCY
     Dosage: 5000 IU, UNK
     Route: 048
  2. COLECALCIFEROL [Suspect]
     Active Substance: CHOLECALCIFEROL
     Dosage: 20000 IU, UNK
  3. COLECALCIFEROL [Suspect]
     Active Substance: CHOLECALCIFEROL
     Dosage: 10000 IU, UNK
     Route: 048
  4. ERGOCALCIFEROL. [Suspect]
     Active Substance: ERGOCALCIFEROL
     Indication: VITAMIN D DEFICIENCY
     Dosage: 50000 IU, UNK
     Route: 060

REACTIONS (2)
  - Off label use [Unknown]
  - Therapy partial responder [Recovered/Resolved]
